FAERS Safety Report 25100717 (Version 1)
Quarter: 2025Q1

REPORT INFORMATION
  Report Type: Spontaneous
  Country: US (occurrence: None)
  Receive Date: 20250320
  Receipt Date: 20250320
  Transmission Date: 20250409
  Serious: Yes (Life-Threatening, Hospitalization)
  Sender: FDA-CTU
  Company Number: None

PATIENT
  Age: 55 Year
  Sex: Male
  Weight: 92.3 kg

DRUGS (2)
  1. YESCARTA [Suspect]
     Active Substance: AXICABTAGENE CILOLEUCEL
     Indication: Diffuse large B-cell lymphoma
     Dates: start: 20250310
  2. CEFEPIME [Suspect]
     Active Substance: CEFEPIME HYDROCHLORIDE

REACTIONS (12)
  - Pleural effusion [None]
  - Atelectasis [None]
  - Oxygen saturation decreased [None]
  - Malignant pleural effusion [None]
  - Cytokine release syndrome [None]
  - Hypotension [None]
  - Sepsis [None]
  - Tremor [None]
  - Serum ferritin increased [None]
  - Immune effector cell-associated neurotoxicity syndrome [None]
  - Lung infiltration [None]
  - Hypernatraemia [None]

NARRATIVE: CASE EVENT DATE: 20250315
